FAERS Safety Report 9639821 (Version 1)
Quarter: 2013Q4

REPORT INFORMATION
  Report Type: Spontaneous
  Country: US (occurrence: None)
  Receive Date: 20131021
  Receipt Date: 20131021
  Transmission Date: 20140711
  Serious: Yes (Other)
  Sender: FDA-Public Use
  Company Number: None

PATIENT
  Age: 48 Year
  Sex: Female
  Weight: 68.04 kg

DRUGS (1)
  1. ATORVASTATIN [Suspect]
     Indication: LOW DENSITY LIPOPROTEIN INCREASED
     Route: 048
     Dates: start: 20121001, end: 20121130

REACTIONS (7)
  - Alopecia [None]
  - Throat tightness [None]
  - Arthralgia [None]
  - Oedema peripheral [None]
  - Photosensitivity reaction [None]
  - Skin discolouration [None]
  - Parotitis [None]
